FAERS Safety Report 17665370 (Version 2)
Quarter: 2021Q3

REPORT INFORMATION
  Report Type: Spontaneous
  Country: US (occurrence: US)
  Receive Date: 20200414
  Receipt Date: 20210726
  Transmission Date: 20211014
  Serious: Yes (Other)
  Sender: FDA-Public Use
  Company Number: US-PERRIGO-20US005231

PATIENT
  Age: 79 Year
  Sex: Female

DRUGS (11)
  1. PREVACID 24 HR [Suspect]
     Active Substance: LANSOPRAZOLE
     Indication: GASTROOESOPHAGEAL REFLUX DISEASE
     Dosage: 15 MG, QD
     Route: 065
     Dates: start: 2003
  2. PROTONIX                           /00661201/ [Suspect]
     Active Substance: OMEPRAZOLE
     Indication: GASTROOESOPHAGEAL REFLUX DISEASE
     Dosage: 40 MG, QD
     Route: 048
     Dates: start: 20140320
  3. PROTONIX [Suspect]
     Active Substance: PANTOPRAZOLE SODIUM
     Indication: GASTROOESOPHAGEAL REFLUX DISEASE
     Dosage: 40 MG, QD
     Route: 065
     Dates: start: 20140320
  4. PRILOSEC [Suspect]
     Active Substance: OMEPRAZOLE MAGNESIUM
     Indication: GASTROOESOPHAGEAL REFLUX DISEASE
     Dosage: UNK, UNK
     Route: 048
     Dates: start: 200301, end: 201603
  5. PREVACID [Suspect]
     Active Substance: LANSOPRAZOLE
     Dosage: 15 MG, QD
     Route: 048
  6. NEXIUM [Suspect]
     Active Substance: ESOMEPRAZOLE MAGNESIUM
     Indication: GASTROOESOPHAGEAL REFLUX DISEASE
     Dosage: 40 MG, QD
     Route: 048
     Dates: start: 200301
  7. NEXIUM [Suspect]
     Active Substance: ESOMEPRAZOLE MAGNESIUM
     Indication: GASTROOESOPHAGEAL REFLUX DISEASE
     Dosage: 40 MG, QD
     Route: 065
     Dates: start: 20100728
  8. PRILOSEC [Suspect]
     Active Substance: OMEPRAZOLE MAGNESIUM
     Indication: GASTROOESOPHAGEAL REFLUX DISEASE
     Dosage: 20 MG, QD
     Route: 065
     Dates: start: 20160318
  9. PREVACID [Suspect]
     Active Substance: LANSOPRAZOLE
     Indication: GASTROOESOPHAGEAL REFLUX DISEASE
     Dosage: 30 MG, QD
     Route: 065
     Dates: start: 20130926, end: 20140627
  10. NEXIUM [Suspect]
     Active Substance: ESOMEPRAZOLE MAGNESIUM
     Dosage: 40 MG, UNK
     Route: 048
     Dates: start: 20100728
  11. PRILOSEC [Suspect]
     Active Substance: OMEPRAZOLE MAGNESIUM
     Dosage: 40 MG, QD
     Route: 048
     Dates: start: 20160318

REACTIONS (8)
  - Diabetic nephropathy [Unknown]
  - Dysuria [Unknown]
  - Chronic kidney disease [Not Recovered/Not Resolved]
  - Pollakiuria [Unknown]
  - Azotaemia [Unknown]
  - Renal failure [Unknown]
  - Acute kidney injury [Not Recovered/Not Resolved]
  - Nephrolithiasis [Unknown]

NARRATIVE: CASE EVENT DATE: 20130926
